FAERS Safety Report 20824710 (Version 3)
Quarter: 2022Q2

REPORT INFORMATION
  Report Type: Report from Study
  Country: PR (occurrence: PR)
  Receive Date: 20220513
  Receipt Date: 20220606
  Transmission Date: 20220721
  Serious: Yes (Death)
  Sender: FDA-Public Use
  Company Number: PR-ABBVIE-22K-131-4393395-00

PATIENT
  Age: 75 Year
  Sex: Female
  Weight: 61.744 kg

DRUGS (1)
  1. VENCLEXTA [Suspect]
     Active Substance: VENETOCLAX
     Indication: Acute myeloid leukaemia
     Route: 048
     Dates: start: 20220405

REACTIONS (2)
  - Skin haemorrhage [Fatal]
  - Acute myeloid leukaemia [Fatal]
